FAERS Safety Report 25265283 (Version 1)
Quarter: 2025Q2

REPORT INFORMATION
  Report Type: Report from Study
  Country: US (occurrence: US)
  Receive Date: 20250502
  Receipt Date: 20250502
  Transmission Date: 20250717
  Serious: Yes (Death, Other)
  Sender: UCB
  Company Number: US-UCBSA-2025013260

PATIENT
  Sex: Male

DRUGS (1)
  1. ROTIGOTINE [Suspect]
     Active Substance: ROTIGOTINE
     Indication: Product used for unknown indication
     Dosage: 2 MILLIGRAM, ONCE DAILY (QD)
     Dates: end: 20250224

REACTIONS (3)
  - Dementia Alzheimer^s type [Fatal]
  - Chronic disease [Fatal]
  - Pulmonary fibrosis [Unknown]
